FAERS Safety Report 6988114-3 (Version None)
Quarter: 2010Q3

REPORT INFORMATION
  Report Type: 
  Country: None (occurrence: None)
  Receive Date: 20100916
  Receipt Date: 20100908
  Transmission Date: 20110219
  Serious: Yes (Other)
  Sender: FDA-Public Use
  Company Number: B0673564A

PATIENT
  Sex: Male

DRUGS (5)
  1. ARIXTRA [Suspect]
     Dosage: 2.5MG PER DAY
     Route: 058
     Dates: start: 20100721, end: 20100817
  2. OSMOTAN [Concomitant]
     Route: 065
  3. SCOPODERM [Concomitant]
     Route: 065
  4. ARTIFICIAL TEARS [Concomitant]
  5. PALLIATIVE CARE [Concomitant]

REACTIONS (4)
  - HAEMOGLOBIN DECREASED [None]
  - MELAENA [None]
  - OFF LABEL USE [None]
  - RED BLOOD CELL COUNT DECREASED [None]
